FAERS Safety Report 6146509-4 (Version None)
Quarter: 2009Q2

REPORT INFORMATION
  Report Type: 
  Country: None (occurrence: None)
  Receive Date: 20090403
  Receipt Date: 20090403
  Transmission Date: 20091009
  Serious: Yes (Other)
  Sender: FDA-Public Use
  Company Number: None

PATIENT
  Sex: Female
  Weight: 72.5755 kg

DRUGS (2)
  1. ORAP [Suspect]
     Indication: OBSESSIVE-COMPULSIVE DISORDER
     Dosage: 2 MG 2 TIMES/DAY
     Dates: start: 19871201
  2. ORAP [Suspect]
     Indication: TOURETTE'S DISORDER
     Dosage: 2 MG 2 TIMES/DAY
     Dates: start: 19871201

REACTIONS (4)
  - ABNORMAL SENSATION IN EYE [None]
  - CRYING [None]
  - PARAESTHESIA [None]
  - TREMOR [None]
